FAERS Safety Report 4335587-0 (Version None)
Quarter: 2004Q2

REPORT INFORMATION
  Report Type: 
  Country: None (occurrence: None)
  Receive Date: 20040409
  Receipt Date: 20040402
  Transmission Date: 20050107
  Serious: Yes (Life-Threatening, Hospitalization, Other)
  Sender: FDA-Public Use
  Company Number: GB-MERCK-0404GBR00030

PATIENT
  Age: 68 Year
  Sex: Female

DRUGS (7)
  1. ALBUTEROL [Concomitant]
     Route: 055
  2. FOSAMAX [Suspect]
     Indication: OSTEOPOROSIS
     Route: 048
     Dates: start: 20030901, end: 20040304
  3. CALCIUM CARBONATE [Concomitant]
     Route: 065
  4. FLUTICASONE PROPIONATE [Concomitant]
     Route: 065
  5. LEVOTHYROXINE SODIUM [Concomitant]
     Route: 065
  6. LIOTHYRONINE HYDROCHLORIDE [Concomitant]
     Route: 065
  7. TEMAZEPAM [Concomitant]
     Route: 065

REACTIONS (3)
  - FOREIGN BODY TRAUMA [None]
  - LARYNGEAL OEDEMA [None]
  - OBSTRUCTIVE AIRWAYS DISORDER [None]
